FAERS Safety Report 20922903 (Version 2)
Quarter: 2022Q2

REPORT INFORMATION
  Report Type: Other
  Country: JP (occurrence: JP)
  Receive Date: 20220607
  Receipt Date: 20220610
  Transmission Date: 20220720
  Serious: Yes (Other)
  Sender: FDA-Public Use
  Company Number: JP-CHUGAI-2022021156

PATIENT
  Age: 63 Year
  Sex: Female

DRUGS (4)
  1. TECENTRIQ [Suspect]
     Active Substance: ATEZOLIZUMAB
     Indication: Carcinoid tumour pulmonary
     Dosage: 1200 MILLIGRAM, ONCE/4WEEKS
     Route: 041
  2. TECENTRIQ [Suspect]
     Active Substance: ATEZOLIZUMAB
     Dosage: 1200 MILLIGRAM
     Route: 065
  3. CARBOPLATIN [Concomitant]
     Active Substance: CARBOPLATIN
     Indication: Carcinoid tumour pulmonary
     Route: 041
  4. ETOPOSIDE [Concomitant]
     Active Substance: ETOPOSIDE
     Indication: Carcinoid tumour pulmonary
     Dosage: 100 MILLIGRAM/SQ. METER, ONCE/4WEEKS
     Route: 065

REACTIONS (2)
  - Neutropenia [Unknown]
  - Off label use [Unknown]
